FAERS Safety Report 5024630-1 (Version None)
Quarter: 2006Q2

REPORT INFORMATION
  Report Type: 
  Country: None (occurrence: None)
  Receive Date: 20060427
  Receipt Date: 20050809
  Transmission Date: 20061013
  Serious: Yes (Death)
  Sender: FDA-Public Use
  Company Number: US-JNJFOC-20050702593

PATIENT
  Age: 77 Year
  Sex: Female
  Weight: 72.5755 kg

DRUGS (5)
  1. GALANTAMINE HYDROBROMIDE [Suspect]
     Indication: DEMENTIA
     Dosage: 0.5 MG, 2 IN 1 DAY, ORAL
     Route: 048
     Dates: start: 20040604, end: 20050623
  2. TYLENOL (ACETAMINOPHEN) SUPPOSITORY [Concomitant]
  3. VALIUM [Concomitant]
  4. ATROPINE (ATROPINE) DROPS [Concomitant]
  5. DULCOLAX (BISACODYL) SUPPOSITORY [Concomitant]

REACTIONS (1)
  - DEMENTIA [None]
